FAERS Safety Report 23847530 (Version 1)
Quarter: 2024Q2

REPORT INFORMATION
  Report Type: Spontaneous
  Country: US (occurrence: US)
  Receive Date: 20240513
  Receipt Date: 20240513
  Transmission Date: 20240716
  Serious: No
  Sender: FDA-Public Use
  Company Number: US-AJANTA-2023AJA00197

PATIENT
  Age: 73 Year
  Sex: Female

DRUGS (2)
  1. CHOLESTYRAMINE [Suspect]
     Active Substance: CHOLESTYRAMINE
     Indication: Product used for unknown indication
     Route: 048
  2. CHOLESTYRAMINE [Suspect]
     Active Substance: CHOLESTYRAMINE
     Route: 048
     Dates: start: 20230816

REACTIONS (5)
  - Product use complaint [Unknown]
  - Product quality issue [Unknown]
  - Product taste abnormal [Unknown]
  - Product solubility abnormal [Unknown]
  - Product substitution issue [Unknown]
